FAERS Safety Report 7108067-7 (Version None)
Quarter: 2010Q4

REPORT INFORMATION
  Report Type: 
  Country: None (occurrence: None)
  Receive Date: 20101115
  Receipt Date: 20101115
  Transmission Date: 20110411
  Serious: Yes (Disabling, Other)
  Sender: FDA-Public Use
  Company Number: None

PATIENT
  Sex: Female
  Weight: 74.8435 kg

DRUGS (1)
  1. SUPER POLYGRIP [Suspect]
     Indication: DENTURE WEARER
     Dosage: 2 TUBES A WEEK WEEKLY ORAL
     Route: 048
     Dates: start: 19980101

REACTIONS (3)
  - MUSCLE DISORDER [None]
  - NEUROPATHY PERIPHERAL [None]
  - PARAESTHESIA [None]
